FAERS Safety Report 6890334-3 (Version None)
Quarter: 2010Q3

REPORT INFORMATION
  Report Type: 
  Country: None (occurrence: None)
  Receive Date: 20100730
  Receipt Date: 20080926
  Transmission Date: 20110219
  Serious: No
  Sender: FDA-Public Use
  Company Number: US-PFIZER INC-2008019691

PATIENT
  Sex: Female
  Weight: 65.909 kg

DRUGS (5)
  1. LIPITOR [Suspect]
     Indication: BLOOD TRIGLYCERIDES INCREASED
  2. LIPITOR [Suspect]
     Indication: OBSTRUCTION
  3. PROZAC [Concomitant]
     Indication: MAJOR DEPRESSION
  4. ACETYLSALICYLIC ACID SRT [Concomitant]
  5. LORAZEPAM [Concomitant]
     Indication: ANXIETY

REACTIONS (5)
  - ACTIVITIES OF DAILY LIVING IMPAIRED [None]
  - CONSTIPATION [None]
  - FATIGUE [None]
  - PAIN [None]
  - PAIN IN EXTREMITY [None]
